FAERS Safety Report 8507821-4 (Version None)
Quarter: 2012Q3

REPORT INFORMATION
  Report Type: 
  Country: None (occurrence: None)
  Receive Date: 20120713
  Receipt Date: 20120711
  Transmission Date: 20120928
  Serious: Yes (Life-Threatening, Hospitalization, Disabling, Other)
  Sender: FDA-Public Use
  Company Number: PHFR2012GB002652

PATIENT
  Sex: Female

DRUGS (6)
  1. VALPROIC ACID [Concomitant]
     Indication: SCHIZOAFFECTIVE DISORDER
     Dosage: 500 MG, DAILY
     Route: 048
  2. OXYBUTYNIN [Concomitant]
     Indication: URINARY INCONTINENCE
     Dosage: 10 MG, DAILY
     Route: 048
  3. CLOZARIL [Suspect]
     Indication: SCHIZOPHRENIA
     Route: 048
     Dates: start: 20031124, end: 20120608
  4. CLOZARIL [Suspect]
     Dosage: 700 MG, (100 MG MANE AND 600 MG NOCTE)
     Route: 048
  5. TRAZODONE HYDROCHLORIDE [Concomitant]
     Indication: SCHIZOAFFECTIVE DISORDER
     Dosage: 200 MG, DAILY
     Route: 048
  6. VENLAFAXINE XL [Concomitant]
     Indication: SCHIZOAFFECTIVE DISORDER
     Dosage: 375 MG, DAILY
     Route: 048

REACTIONS (4)
  - PELVIC MASS [None]
  - OVARIAN CANCER STAGE III [None]
  - ABDOMINAL NEOPLASM [None]
  - ABDOMINAL PAIN [None]
